FAERS Safety Report 14372758 (Version 2)
Quarter: 2018Q3

REPORT INFORMATION
  Report Type: Spontaneous
  Country: FR (occurrence: FR)
  Receive Date: 20180110
  Receipt Date: 20180810
  Transmission Date: 20181010
  Serious: Yes (Other)
  Sender: FDA-Public Use
  Company Number: FR-TEVA-2018-FR-844986

PATIENT
  Age: 43 Year
  Sex: Male
  Weight: 73 kg

DRUGS (14)
  1. NEORAL [Suspect]
     Active Substance: CYCLOSPORINE
     Indication: TRANSPLANT REJECTION
     Route: 048
     Dates: start: 20170223
  2. NOXAFIL [Suspect]
     Active Substance: POSACONAZOLE
     Indication: PROPHYLAXIS
     Route: 048
     Dates: start: 20170223
  3. LEVOFLOXACIN. [Concomitant]
     Active Substance: LEVOFLOXACIN
  4. MYCOSTATIN [Concomitant]
     Active Substance: NYSTATIN
  5. GLIVEC [Suspect]
     Active Substance: IMATINIB MESYLATE
     Indication: LEUKAEMIA
     Route: 048
     Dates: start: 20170712, end: 20170915
  6. SOLUPRED (FRANCE) [Suspect]
     Active Substance: PREDNISOLONE SODIUM METAZOATE
     Indication: PROPHYLAXIS
     Route: 048
     Dates: start: 20170223
  7. TEMESTA (FRANCE) [Concomitant]
     Active Substance: LORAZEPAM
  8. BACTRIM [Suspect]
     Active Substance: SULFAMETHOXAZOLE\TRIMETHOPRIM
     Indication: PROPHYLAXIS
     Route: 048
     Dates: start: 20170223
  9. LEVOTHYROX [Concomitant]
     Active Substance: LEVOTHYROXINE
  10. SPECIAFOLDINE [Concomitant]
     Active Substance: FOLIC ACID
  11. OROCAL D3 [Concomitant]
     Active Substance: CALCIUM CARBONATE\CHOLECALCIFEROL
  12. AMOXICILLIN. [Suspect]
     Active Substance: AMOXICILLIN
     Indication: PROPHYLAXIS
     Route: 048
     Dates: start: 20170223
  13. PANTOPRAZOLE [Concomitant]
     Active Substance: PANTOPRAZOLE
  14. ZELITREX [Suspect]
     Active Substance: VALACYCLOVIR HYDROCHLORIDE
     Indication: PROPHYLAXIS
     Route: 048
     Dates: start: 20170223

REACTIONS (6)
  - Abdominal pain [Not Recovered/Not Resolved]
  - Insomnia [Not Recovered/Not Resolved]
  - Hepatic failure [Not Recovered/Not Resolved]
  - Renal failure [Not Recovered/Not Resolved]
  - Dry skin [Not Recovered/Not Resolved]
  - Fluid retention [Not Recovered/Not Resolved]

NARRATIVE: CASE EVENT DATE: 201709
